FAERS Safety Report 24242194 (Version 1)
Quarter: 2024Q3

REPORT INFORMATION
  Report Type: Spontaneous
  Country: VN (occurrence: VN)
  Receive Date: 20240823
  Receipt Date: 20240823
  Transmission Date: 20241017
  Serious: Yes (Hospitalization)
  Sender: BOEHRINGER INGELHEIM
  Company Number: VN-BoehringerIngelheim-2024-BI-046448

PATIENT
  Age: 60 Year
  Sex: Female

DRUGS (1)
  1. GILOTRIF [Suspect]
     Active Substance: AFATINIB
     Indication: Product used for unknown indication
     Dosage: FORM STRENGTH: 30 MILLIGRAM

REACTIONS (10)
  - Erythema [Unknown]
  - Skin discharge [Unknown]
  - Alopecia [Unknown]
  - Pruritus [Unknown]
  - Dry skin [Unknown]
  - Nail infection [Unknown]
  - Lip blister [Unknown]
  - Pruritus [Unknown]
  - Pain of skin [Unknown]
  - Papule [Unknown]

NARRATIVE: CASE EVENT DATE: 20220806
